FAERS Safety Report 16291117 (Version 2)
Quarter: 2019Q3

REPORT INFORMATION
  Report Type: Spontaneous
  Country: US (occurrence: US)
  Receive Date: 20190509
  Receipt Date: 20190709
  Transmission Date: 20191004
  Serious: No
  Sender: FDA-Public Use
  Company Number: US-PFIZER INC-2019192964

PATIENT
  Age: 60 Year
  Sex: Female

DRUGS (2)
  1. IBRANCE [Suspect]
     Active Substance: PALBOCICLIB
     Dosage: 100 MG, UNK
     Dates: start: 201903
  2. IBRANCE [Suspect]
     Active Substance: PALBOCICLIB
     Indication: BREAST CANCER FEMALE
     Dosage: 125 MG, CYCLIC (DAILY ON DAYS 1-21)
     Route: 048
     Dates: start: 20181024, end: 20190301

REACTIONS (5)
  - Bone pain [Recovering/Resolving]
  - Full blood count decreased [Recovering/Resolving]
  - Fatigue [Recovering/Resolving]
  - Neoplasm progression [Unknown]
  - Arthralgia [Recovering/Resolving]
